FAERS Safety Report 14195348 (Version 1)
Quarter: 2017Q4

REPORT INFORMATION
  Report Type: Spontaneous
  Country: US (occurrence: US)
  Receive Date: 20171116
  Receipt Date: 20171116
  Transmission Date: 20180321
  Serious: No
  Sender: FDA-Public Use
  Company Number: US-PFIZER INC-2017491054

PATIENT
  Age: 48 Year
  Sex: Female

DRUGS (1)
  1. EUCRISA [Suspect]
     Active Substance: CRISABOROLE
     Indication: RASH
     Dosage: UNK
     Dates: start: 201710, end: 201710

REACTIONS (4)
  - Application site swelling [Unknown]
  - Application site pruritus [Unknown]
  - Condition aggravated [Unknown]
  - Application site erythema [Unknown]

NARRATIVE: CASE EVENT DATE: 201710
